FAERS Safety Report 9055226 (Version 1)
Quarter: 2013Q1

REPORT INFORMATION
  Report Type: Spontaneous
  Country: CN (occurrence: CN)
  Receive Date: 20130206
  Receipt Date: 20130206
  Transmission Date: 20140127
  Serious: Yes (Hospitalization, Other)
  Sender: FDA-Public Use
  Company Number: CN-BAYER-2013-013047

PATIENT
  Age: 62 Year
  Sex: Male

DRUGS (7)
  1. ACETYLSALICYLIC ACID({=100 MG) [Suspect]
     Indication: THROMBOSIS PROPHYLAXIS
     Dosage: 0.1 G, QD
     Route: 048
     Dates: start: 20120603
  2. ACETYLSALICYLIC ACID({=100 MG) [Suspect]
     Indication: AORTIC VALVE REPLACEMENT
  3. WARFARIN [Suspect]
     Indication: THROMBOSIS PROPHYLAXIS
     Dosage: 3.0 MG, QD
     Route: 048
     Dates: start: 20120603
  4. WARFARIN [Suspect]
     Indication: AORTIC VALVE REPLACEMENT
     Dosage: 3 MG, QD
     Route: 048
  5. METOPROLOL TARTRATE [Concomitant]
     Dosage: 47.5 MG, QD
  6. ROSUVASTATIN CALCIUM [Concomitant]
     Dosage: 10 MG, QD
  7. PERINDOPRIL [Concomitant]
     Dosage: 4 MG, QD

REACTIONS (13)
  - Gastric ulcer haemorrhage [None]
  - Abdominal pain upper [None]
  - Abdominal discomfort [None]
  - Melaena [None]
  - Abdominal distension [None]
  - Flatulence [None]
  - Dizziness [None]
  - Fatigue [None]
  - Palpitations [None]
  - Anaemia [None]
  - Conjunctival pallor [None]
  - Red blood cell count decreased [None]
  - Haemoglobin decreased [None]
